FAERS Safety Report 9869262 (Version 3)
Quarter: 2014Q1

REPORT INFORMATION
  Report Type: Report from Study
  Country: NL (occurrence: NL)
  Receive Date: 20140205
  Receipt Date: 20140310
  Transmission Date: 20141002
  Serious: Yes (Hospitalization)
  Sender: FDA-Public Use
  Company Number: NL-ROCHE-1335997

PATIENT
  Age: 57 Year
  Sex: Male

DRUGS (6)
  1. RITUXIMAB [Suspect]
     Indication: CHRONIC GRAFT VERSUS HOST DISEASE
     Dosage: 700 MG PER INFUSION
     Route: 042
     Dates: start: 20131210, end: 20140103
  2. NILOTINIB [Suspect]
     Indication: CHRONIC GRAFT VERSUS HOST DISEASE
     Route: 048
     Dates: start: 20140113
  3. SULFAMETHOXAZOLE/TRIMETHOPRIM [Concomitant]
     Indication: PROPHYLAXIS
     Route: 048
  4. CICLOSPORINE [Concomitant]
     Indication: IMMUNOSUPPRESSION
     Route: 048
  5. PREDNISOLON [Concomitant]
     Indication: CHRONIC GRAFT VERSUS HOST DISEASE
     Route: 048
  6. VALACICLOVIR [Concomitant]

REACTIONS (1)
  - Plasma cell myeloma [Unknown]
